FAERS Safety Report 12146489 (Version 1)
Quarter: 2016Q1

REPORT INFORMATION
  Report Type: Spontaneous
  Country: US (occurrence: US)
  Receive Date: 20160304
  Receipt Date: 20160304
  Transmission Date: 20160526
  Serious: No
  Sender: FDA-Public Use
  Company Number: US-INDIVIOR LIMITED-RB-077385-2015

PATIENT
  Sex: Male

DRUGS (4)
  1. BUPRENORPHINE/NALOXONE GENERIC [Suspect]
     Active Substance: BUPRENORPHINE\NALOXONE
     Indication: DEPRESSION
     Dosage: 8-12 MG, DAILY
     Route: 060
  2. SUBOXONE [Suspect]
     Active Substance: BUPRENORPHINE HYDROCHLORIDE\NALOXONE HYDROCHLORIDE
     Indication: DRUG DEPENDENCE
     Dosage: 8 MG, QD
     Route: 060
     Dates: start: 1999
  3. BUPRENORPHINE/NALOXONE GENERIC [Suspect]
     Active Substance: BUPRENORPHINE\NALOXONE
     Indication: DRUG DEPENDENCE
     Dosage: 8-12 MG, DAILY
     Route: 060
  4. SUBOXONE [Suspect]
     Active Substance: BUPRENORPHINE HYDROCHLORIDE\NALOXONE HYDROCHLORIDE
     Indication: DRUG DEPENDENCE
     Dosage: UNK, DAILY FOR 1 MONTH
     Route: 060

REACTIONS (3)
  - Therapeutic response unexpected [Not Recovered/Not Resolved]
  - Product preparation error [Not Recovered/Not Resolved]
  - Drug ineffective for unapproved indication [Recovered/Resolved]

NARRATIVE: CASE EVENT DATE: 1999
